FAERS Safety Report 4878145-1 (Version None)
Quarter: 2005Q4

REPORT INFORMATION
  Report Type: 
  Country: None (occurrence: None)
  Receive Date: 20051212
  Receipt Date: 20050908
  Transmission Date: 20060501
  Serious: No
  Sender: FDA-Public Use
  Company Number: 2005-01010

PATIENT
  Age: 64 Year
  Sex: Male
  Weight: 96.1 kg

DRUGS (8)
  1. VELCADE [Suspect]
     Indication: MULTIPLE MYELOMA
     Dosage: 2.60 MG
     Dates: start: 20050303
  2. COREG [Concomitant]
  3. CAPTOPRIL [Concomitant]
  4. LANOXIN [Concomitant]
  5. GLUCOPHAGE [Concomitant]
  6. GLYBURIDE [Concomitant]
  7. GEMFIBROZIL [Concomitant]
  8. ALOXI [Concomitant]

REACTIONS (1)
  - HEADACHE [None]
